FAERS Safety Report 8191791 (Version 3)
Quarter: 2013Q4

REPORT INFORMATION
  Report Type: Spontaneous
  Country: US (occurrence: US)
  Receive Date: 20111020
  Receipt Date: 20131003
  Transmission Date: 20140711
  Serious: Yes (Other)
  Sender: FDA-Public Use
  Company Number: US-ROCHE-1005287

PATIENT
  Sex: Female

DRUGS (3)
  1. XOLAIR [Suspect]
     Indication: ASTHMA
     Route: 058
  2. XOLAIR [Suspect]
     Indication: BLOOD IMMUNOGLOBULIN E INCREASED
     Route: 058
  3. BACTRIM [Concomitant]
     Route: 065

REACTIONS (10)
  - Autoimmune disorder [Unknown]
  - Feeling abnormal [Unknown]
  - Eosinophil count increased [Unknown]
  - Fatigue [Unknown]
  - Influenza like illness [Unknown]
  - Lip disorder [Not Recovered/Not Resolved]
  - Lip swelling [Not Recovered/Not Resolved]
  - Throat irritation [Not Recovered/Not Resolved]
  - Rash [Not Recovered/Not Resolved]
  - Malaise [Not Recovered/Not Resolved]
